FAERS Safety Report 15390048 (Version 1)
Quarter: 2018Q3

REPORT INFORMATION
  Report Type: Spontaneous
  Country: TR (occurrence: TR)
  Receive Date: 20180917
  Receipt Date: 20180917
  Transmission Date: 20181010
  Serious: Yes (Death, Hospitalization, Other)
  Sender: FDA-Public Use
  Company Number: TR-IPCA LABORATORIES LIMITED-IPC-2018-TR-001956

PATIENT

DRUGS (1)
  1. METFORMIN [Suspect]
     Active Substance: METFORMIN HYDROCHLORIDE
     Indication: PRODUCT USED FOR UNKNOWN INDICATION
     Dosage: 1388 MG/KG, SINGLE
     Route: 065

REACTIONS (5)
  - Intentional overdose [Fatal]
  - Toxicity to various agents [Unknown]
  - Suicide attempt [Unknown]
  - Lactic acidosis [Fatal]
  - Gastrointestinal disorder [Unknown]
